FAERS Safety Report 8869225 (Version 2)
Quarter: 2012Q4

REPORT INFORMATION
  Report Type: Report from Study
  Country: US (occurrence: US)
  Receive Date: 20121030
  Receipt Date: 20121030
  Transmission Date: 20130627
  Serious: Yes (Hospitalization, Other)
  Sender: FDA-Public Use
  Company Number: US-BAXTER-2012BAX020390

PATIENT
  Age: 72 Year
  Sex: Female

DRUGS (1)
  1. ARALAST NP [Suspect]
     Indication: DRUG USE FOR UNKNOWN INDICATION
     Route: 042

REACTIONS (3)
  - Pulmonary mass [Unknown]
  - Neoplasm malignant [Unknown]
  - Pneumonia [Recovered/Resolved]
